FAERS Safety Report 17489769 (Version 1)
Quarter: 2020Q1

REPORT INFORMATION
  Report Type: Report from Study
  Country: NL (occurrence: NL)
  Receive Date: 20200303
  Receipt Date: 20200303
  Transmission Date: 20200409
  Serious: Yes (Hospitalization)
  Sender: FDA-Public Use
  Company Number: NL-MYLANLABS-2019M1025478

PATIENT

DRUGS (4)
  1. BEVACIZUMAB. [Suspect]
     Active Substance: BEVACIZUMAB
     Indication: COLORECTAL CANCER
     Dosage: 17/APR/2018 RECEIVED LAST DOE OF BEVACZIUMAB
     Route: 065
     Dates: start: 20180206
  2. OXALIPLATIN. [Suspect]
     Active Substance: OXALIPLATIN
     Indication: COLORECTAL CANCER
     Dosage: 17/APR/2018 RECEIVED LAST DOSE OF OXALIPLATIN
     Route: 065
     Dates: start: 20180206
  3. LEUCOVORIN                         /00566701/ [Suspect]
     Active Substance: LEUCOVORIN
     Indication: COLORECTAL CANCER
     Dosage: 17/APR/2018 RECEIVED LAST DOSE OF LEUCOVORIN
     Route: 065
     Dates: start: 20180206
  4. FLUOROURACIL. [Suspect]
     Active Substance: FLUOROURACIL
     Indication: COLORECTAL CANCER
     Dosage: 18/APR/2018 RECEIVED LAST DOSE OF FLUOROURACIL
     Route: 065
     Dates: start: 20180206

REACTIONS (2)
  - Tooth infection [Recovered/Resolved]
  - Malaise [Recovered/Resolved]

NARRATIVE: CASE EVENT DATE: 20180501
